FAERS Safety Report 7891007-0 (Version None)
Quarter: 2011Q4

REPORT INFORMATION
  Report Type: 
  Country: None (occurrence: None)
  Receive Date: 20111103
  Receipt Date: 20111025
  Transmission Date: 20120403
  Serious: Yes (Other)
  Sender: FDA-Public Use
  Company Number: CA-ASTRAZENECA-2011SE64375

PATIENT
  Sex: Female

DRUGS (2)
  1. CRESTOR [Suspect]
     Route: 048
     Dates: start: 20111024
  2. CRESTOR [Suspect]
     Route: 048
     Dates: end: 20111001

REACTIONS (2)
  - PAIN IN EXTREMITY [None]
  - GAIT DISTURBANCE [None]
